FAERS Safety Report 10883348 (Version 2)
Quarter: 2015Q1

REPORT INFORMATION
  Report Type: Spontaneous
  Country: US (occurrence: US)
  Receive Date: 20150303
  Receipt Date: 20150326
  Transmission Date: 20150721
  Serious: Yes (Other)
  Sender: FDA-Public Use
  Company Number: US-ACTELION-A-US2015-113753

PATIENT
  Age: 55 Year
  Sex: Female

DRUGS (3)
  1. ADCIRCA [Concomitant]
     Active Substance: TADALAFIL
  2. VELETRI [Suspect]
     Active Substance: EPOPROSTENOL
     Indication: PULMONARY ARTERIAL HYPERTENSION
     Dosage: 17.9 NG/KG, PER MIN
     Route: 042
     Dates: start: 20121212
  3. COUMADIN [Concomitant]
     Active Substance: WARFARIN SODIUM

REACTIONS (1)
  - Spinal fracture [Recovering/Resolving]

NARRATIVE: CASE EVENT DATE: 20150119
